FAERS Safety Report 9471523 (Version 1)
Quarter: 2013Q3

REPORT INFORMATION
  Report Type: Spontaneous
  Country: US (occurrence: US)
  Receive Date: 20130822
  Receipt Date: 20130822
  Transmission Date: 20140515
  Serious: Yes (Hospitalization)
  Sender: FDA-Public Use
  Company Number: US-PFIZER INC-2013240509

PATIENT
  Age: 68 Year
  Sex: Female
  Weight: 55.78 kg

DRUGS (15)
  1. REVATIO [Suspect]
     Indication: PULMONARY HYPERTENSION
     Dosage: 20 MG, 3X/DAY
     Route: 048
  2. REVATIO [Suspect]
     Dosage: 40 MG (TWO TABLETS OF 20 MG) , 3X/DAY
     Route: 048
  3. REVATIO [Suspect]
     Dosage: UNK
     Route: 048
  4. FLOLAN [Concomitant]
     Dosage: 1.5 MG, 1X/DAY
     Route: 042
  5. LETAIRIS [Concomitant]
     Dosage: 10 MG, 1X/DAY
  6. LISINOPRIL [Concomitant]
     Dosage: 20 MG, 1X/DAY
  7. SIMVASTATIN [Concomitant]
     Dosage: 20 MG, 1X/DAY
  8. FUROSEMIDE [Concomitant]
     Dosage: 40 MG, 1X/DAY
  9. PREDNISONE [Concomitant]
     Dosage: 5 MG, 1X/DAY
  10. POTASSIUM [Concomitant]
     Dosage: 10 MEQ, 1X/DAY
  11. AZATHIOPRINE [Concomitant]
     Dosage: 100 MG (50MG TWO TABLETS), 1X/DAY
  12. VITAMIN D3 [Concomitant]
     Dosage: UNK, 1X/DAY
  13. OMEPRAZOLE [Concomitant]
     Dosage: 40 MG, 1X/DAY
  14. CALTRATE 600+D [Concomitant]
     Dosage: UNK, 2X/DAY
  15. CENTRUM [Concomitant]
     Dosage: UNK, 1X/DAY

REACTIONS (5)
  - Gastroenteritis viral [Unknown]
  - Feeling abnormal [Unknown]
  - Depressed mood [Unknown]
  - Malaise [Unknown]
  - Incorrect dose administered [Unknown]
